FAERS Safety Report 5758451-9 (Version None)
Quarter: 2008Q2

REPORT INFORMATION
  Report Type: 
  Country: None (occurrence: None)
  Receive Date: 20080604
  Receipt Date: 20080527
  Transmission Date: 20081010
  Serious: Yes (Hospitalization)
  Sender: FDA-Public Use
  Company Number: US-TEVA-169011USA

PATIENT
  Sex: Male
  Weight: 107 kg

DRUGS (6)
  1. FLUOROURACIL [Suspect]
     Indication: COLON CANCER
     Route: 040
     Dates: start: 20080211
  2. FLUOROURACIL [Suspect]
     Route: 042
     Dates: start: 20080211
  3. OXALIPLATIN [Suspect]
     Indication: COLON CANCER
     Route: 042
     Dates: start: 20080211
  4. BEVACIZUMAB [Suspect]
     Indication: COLON CANCER
     Route: 042
     Dates: start: 20080211
  5. FOLINIC ACID [Suspect]
     Indication: COLON CANCER
  6. PROCHLORPERAZINE EDISYLATE [Concomitant]
     Dates: start: 20080213

REACTIONS (5)
  - BACK PAIN [None]
  - GROIN PAIN [None]
  - HYPERHIDROSIS [None]
  - PAIN IN EXTREMITY [None]
  - PULMONARY EMBOLISM [None]
